FAERS Safety Report 5589684-2 (Version None)
Quarter: 2008Q1

REPORT INFORMATION
  Report Type: 
  Country: None (occurrence: None)
  Receive Date: 20080114
  Receipt Date: 20080103
  Transmission Date: 20080703
  Serious: Yes (Other)
  Sender: FDA-Public Use
  Company Number: B0422552A

PATIENT
  Sex: Female

DRUGS (3)
  1. SEROXAT [Suspect]
     Route: 065
     Dates: start: 19980910
  2. DIAZEPAM [Concomitant]
     Dosage: 5MG THREE TIMES PER DAY
  3. CHLORDIAZEPOXIDE [Concomitant]
     Dates: start: 19990830

REACTIONS (14)
  - ADVERSE EVENT [None]
  - AGGRESSION [None]
  - AGITATION [None]
  - ANXIETY [None]
  - DIZZINESS [None]
  - FATIGUE [None]
  - HYPERHIDROSIS [None]
  - NAUSEA [None]
  - NIGHTMARE [None]
  - PARAESTHESIA [None]
  - PRURITUS [None]
  - SLEEP DISORDER [None]
  - SUICIDAL IDEATION [None]
  - VOMITING [None]
